FAERS Safety Report 21092772 (Version 1)
Quarter: 2022Q3

REPORT INFORMATION
  Report Type: Spontaneous
  Country: BR (occurrence: BR)
  Receive Date: 20220718
  Receipt Date: 20220718
  Transmission Date: 20221027
  Serious: Yes (Other)
  Sender: FDA-Public Use
  Company Number: ALC2022BR003200

PATIENT
  Age: 77 Year
  Sex: Male

DRUGS (1)
  1. AZOPT [Suspect]
     Active Substance: BRINZOLAMIDE
     Indication: Product used for unknown indication
     Dosage: 5 ML (TWO YEARS AGO);
     Route: 065

REACTIONS (8)
  - Glaucoma [Not Recovered/Not Resolved]
  - Cataract [Not Recovered/Not Resolved]
  - Visual impairment [Unknown]
  - Myopia [Not Recovered/Not Resolved]
  - Nervousness [Unknown]
  - Product outer packaging issue [Unknown]
  - Product packaging quantity issue [Unknown]
  - Headache [Not Recovered/Not Resolved]
